FAERS Safety Report 6123532-7 (Version None)
Quarter: 2009Q1

REPORT INFORMATION
  Report Type: 
  Country: None (occurrence: None)
  Receive Date: 20090318
  Receipt Date: 20090310
  Transmission Date: 20090719
  Serious: Yes (Hospitalization, Other)
  Sender: FDA-Public Use
  Company Number: US-GENENTECH-274028

PATIENT
  Age: 61 Year
  Sex: Female
  Weight: 67.7 kg

DRUGS (15)
  1. BLINDED BEVACIZUMAB [Suspect]
     Indication: BREAST CANCER
     Dosage: 15 MG/KG, Q2W, CYCLES 1-4
     Route: 042
     Dates: start: 20080805, end: 20081021
  2. CYCLOPHOSPHAMIDE [Suspect]
     Indication: BREAST CANCER
     Dosage: 15 MG/KG, Q2W, CYCLES 1-4
     Route: 042
     Dates: start: 20080805, end: 20081021
  3. DOXORUBICIN HCL [Suspect]
     Indication: BREAST CANCER
     Dosage: 15 MG/KG, Q2W, CYCLES 1-4
     Route: 042
     Dates: start: 20080805, end: 20081021
  4. PACLITAXEL [Suspect]
     Indication: BREAST CANCER
     Dosage: 15 MG/KG, Q2W, CYCLES 1-4
     Route: 042
     Dates: start: 20080805, end: 20081021
  5. BLINDED PLACEBO [Suspect]
     Indication: BREAST CANCER
     Dosage: 15 MG/KG, Q2W, CYCLES 1-4
     Route: 042
     Dates: start: 20080805, end: 20081021
  6. BLINDED BEVACIZUMAB [Suspect]
     Dosage: 15 MG/KG, Q3W, CYCLES 5-8
     Route: 042
  7. CYCLOPHOSPHAMIDE [Suspect]
     Dosage: 15 MG/KG, Q3W, CYCLES 5-8
     Route: 042
  8. DOXORUBICIN HCL [Suspect]
     Dosage: 15 MG/KG, Q3W, CYCLES 5-8
     Route: 042
  9. PACLITAXEL [Suspect]
     Dosage: 15 MG/KG, Q3W, CYCLES 5-8
     Route: 042
  10. BLINDED PLACEBO [Suspect]
     Dosage: 15 MG/KG, Q3W, CYCLES 5-8
     Route: 042
  11. DOXORUBICIN HCL [Suspect]
     Indication: BREAST CANCER
     Dosage: 60 MG/M2, UNK
     Route: 040
     Dates: start: 20080805
  12. CYCLOPHOSPHAMIDE [Suspect]
     Indication: BREAST CANCER
     Dosage: 600 MG/M2, UNK
     Route: 042
     Dates: start: 20080805
  13. PACLITAXEL [Suspect]
     Indication: BREAST CANCER
     Dosage: 80 MG/M2, UNK
     Route: 042
     Dates: start: 20080805, end: 20081104
  14. NORVASC [Concomitant]
     Indication: DRUG USE FOR UNKNOWN INDICATION
  15. ASPIRIN [Concomitant]
     Indication: DRUG USE FOR UNKNOWN INDICATION

REACTIONS (3)
  - LUNG INFILTRATION [None]
  - PERICARDIAL EFFUSION [None]
  - PNEUMONITIS [None]
